FAERS Safety Report 6313973-7 (Version None)
Quarter: 2009Q3

REPORT INFORMATION
  Report Type: 
  Country: None (occurrence: None)
  Receive Date: 20090818
  Receipt Date: 20090807
  Transmission Date: 20100115
  Serious: Yes (Other)
  Sender: FDA-Public Use
  Company Number: PHHY2009JP33427

PATIENT
  Sex: Female
  Weight: 61 kg

DRUGS (12)
  1. STI571/CGP57148B T35717+TAB [Suspect]
     Indication: ACUTE LYMPHOCYTIC LEUKAEMIA
     Dosage: 600 MG/DAY
     Route: 048
     Dates: start: 20080905, end: 20080921
  2. STI571/CGP57148B T35717+TAB [Suspect]
     Dosage: 200 MG/DAY
     Route: 048
     Dates: start: 20081022, end: 20081030
  3. STI571/CGP57148B T35717+TAB [Suspect]
     Dosage: 300 MG/DAY
     Route: 048
     Dates: start: 20081031, end: 20081106
  4. STI571/CGP57148B T35717+TAB [Suspect]
     Dosage: 200 MG/DAY
     Route: 048
     Dates: start: 20081107, end: 20081118
  5. STI571/CGP57148B T35717+TAB [Suspect]
     Dosage: 200 MG/DAY
     Dates: start: 20081205, end: 20090104
  6. STI571/CGP57148B T35717+TAB [Suspect]
     Dosage: 200 MG/DAY
     Dates: start: 20090130, end: 20090301
  7. STI571/CGP57148B T35717+TAB [Suspect]
     Dosage: 600 MG/DAY
     Route: 048
     Dates: start: 20090323
  8. PREDONINE [Concomitant]
     Dosage: 95 MG
     Route: 048
     Dates: start: 20080911, end: 20081009
  9. PREDONINE [Concomitant]
     Dosage: 50 MG, UNK
  10. PREDONINE [Concomitant]
     Dosage: 25 MG, UNK
  11. PREDONINE [Concomitant]
     Dosage: 10 MG, UNK
  12. ONCOVIN [Concomitant]
     Dosage: 2 MG, UNK
     Dates: start: 20080911, end: 20081002

REACTIONS (9)
  - DEMENTIA [None]
  - HERPES ZOSTER [None]
  - HYPOCOAGULABLE STATE [None]
  - HYPOKALAEMIA [None]
  - MALAISE [None]
  - OEDEMA [None]
  - PANCYTOPENIA [None]
  - PLATELET COUNT DECREASED [None]
  - PLEURAL EFFUSION [None]
